FAERS Safety Report 21966557 (Version 4)
Quarter: 2023Q4

REPORT INFORMATION
  Report Type: Report from Study
  Country: AR (occurrence: AR)
  Receive Date: 20230208
  Receipt Date: 20231120
  Transmission Date: 20240109
  Serious: Yes (Hospitalization, Other)
  Sender: FDA-Public Use
  Company Number: AR-TAKEDA-2023TUS012969

PATIENT
  Age: 50 Year
  Sex: Female

DRUGS (2)
  1. VEDOLIZUMAB [Suspect]
     Active Substance: VEDOLIZUMAB
     Indication: Colitis ulcerative
     Dosage: 300 MILLIGRAM, Q4WEEKS
     Route: 042
     Dates: start: 20190507
  2. VEDOLIZUMAB [Suspect]
     Active Substance: VEDOLIZUMAB
     Dosage: 300 MILLIGRAM
     Route: 042

REACTIONS (6)
  - Hypokalaemia [Recovered/Resolved]
  - Squamous cell carcinoma of skin [Recovering/Resolving]
  - Malaise [Recovering/Resolving]
  - Hypomagnesaemia [Recovering/Resolving]
  - Off label use [Unknown]
  - Ear pain [Recovering/Resolving]

NARRATIVE: CASE EVENT DATE: 20190507
